FAERS Safety Report 12922619 (Version 1)
Quarter: 2016Q4

REPORT INFORMATION
  Report Type: Spontaneous
  Country: CN (occurrence: CN)
  Receive Date: 20161109
  Receipt Date: 20161109
  Transmission Date: 20170207
  Serious: Yes (Other)
  Sender: FDA-Public Use
  Company Number: CN-ASTRAZENECA-2016SF17997

PATIENT
  Age: 17167 Day
  Sex: Female
  Weight: 70 kg

DRUGS (2)
  1. SODIUM CHLORIDE. [Concomitant]
     Active Substance: SODIUM CHLORIDE
     Route: 055
     Dates: start: 20160604, end: 20160604
  2. BUDESONIDE. [Suspect]
     Active Substance: BUDESONIDE
     Indication: PHARYNGITIS
     Route: 055
     Dates: start: 20160604, end: 20160604

REACTIONS (2)
  - Dyspnoea [Recovering/Resolving]
  - Quadriplegia [Recovering/Resolving]

NARRATIVE: CASE EVENT DATE: 20160604
